FAERS Safety Report 7516296-3 (Version None)
Quarter: 2011Q2

REPORT INFORMATION
  Report Type: 
  Country: None (occurrence: None)
  Receive Date: 20110601
  Receipt Date: 20110523
  Transmission Date: 20111010
  Serious: Yes (Hospitalization)
  Sender: FDA-Public Use
  Company Number: BE-AMGEN-US089330

PATIENT
  Age: 68 Year
  Sex: Male
  Weight: 89 kg

DRUGS (10)
  1. DELTACORTRIL                       /00016201/ [Concomitant]
     Dosage: 7.5 MG, QD
     Route: 048
     Dates: start: 20030320
  2. ETANERCEPT [Suspect]
     Dosage: 25 MG, 2 TIMES/WK
     Route: 058
     Dates: end: 20040620
  3. ETANERCEPT [Suspect]
     Dosage: 25 MG, 2 TIMES/WK
     Route: 058
     Dates: end: 20040715
  4. ETANERCEPT [Suspect]
     Indication: RHEUMATOID ARTHRITIS
     Dosage: 25 MG, 2 TIMES/WK
     Route: 058
     Dates: start: 20030424, end: 20030913
  5. ETANERCEPT [Suspect]
     Dosage: 25 MG, 2 TIMES/WK
     Route: 058
     Dates: start: 20031010
  6. DILTIAZEM HCL [Concomitant]
     Dosage: 200 MG, QD
     Route: 048
  7. ETANERCEPT [Suspect]
     Dosage: 25 MG, 2 TIMES/WK
     Route: 058
     Dates: end: 20040815
  8. METHOTREXATE [Concomitant]
     Dosage: 15 MG, QWK
     Route: 030
     Dates: start: 20030320
  9. AMIODARONE HCL [Concomitant]
     Dosage: 200 MG, QD
  10. SINTROM [Concomitant]
     Dosage: UNK UNK, UNK
     Route: 048
     Dates: start: 20040721

REACTIONS (4)
  - KIDNEY INFECTION [None]
  - BURSITIS INFECTIVE [None]
  - PULMONARY EMBOLISM [None]
  - LUNG INFECTION [None]
